FAERS Safety Report 12465998 (Version 1)
Quarter: 2016Q2

REPORT INFORMATION
  Report Type: Spontaneous
  Country: FR (occurrence: FR)
  Receive Date: 20160614
  Receipt Date: 20160614
  Transmission Date: 20160815
  Serious: Yes (Hospitalization)
  Sender: FDA-Public Use
  Company Number: FR-TEVA-665874ISR

PATIENT
  Age: 16 Year
  Sex: Female

DRUGS (7)
  1. TETRALYSAL [Suspect]
     Active Substance: LYMECYCLINE
     Indication: ACNE
     Dosage: 300 MILLIGRAM DAILY;
     Route: 048
     Dates: start: 2014
  2. ALLERGENE DP352 [Concomitant]
  3. LEELOO 0,1 MG/0,02 MG, COMPRIM? ENROB? [Suspect]
     Active Substance: ETHINYL ESTRADIOL\LEVONORGESTREL
     Indication: ORAL CONTRACEPTION
     Dosage: 1 DOSAGE FORMS DAILY; 1 DOSAGE FORM= 0.02MG ETHINYLESTRADIOL + 0.1 MG LEVONORGESTREL
     Route: 048
     Dates: start: 201604
  4. SINGULAIR [Suspect]
     Active Substance: MONTELUKAST SODIUM
     Indication: ASTHMA
     Dosage: 10 MILLIGRAM DAILY;
     Route: 048
     Dates: start: 2014
  5. KESTINLYO [Concomitant]
     Active Substance: EBASTINE
  6. AVAMYS [Concomitant]
     Active Substance: FLUTICASONE FUROATE
  7. VENTOLINE [Concomitant]
     Active Substance: ALBUTEROL
     Dosage: IF NEEDED

REACTIONS (1)
  - Status epilepticus [Recovered/Resolved]

NARRATIVE: CASE EVENT DATE: 20160513
